FAERS Safety Report 8956638 (Version 2)
Quarter: 2013Q1

REPORT INFORMATION
  Report Type: Spontaneous
  Country: BR (occurrence: BR)
  Receive Date: 20121210
  Receipt Date: 20130207
  Transmission Date: 20140127
  Serious: Yes (Other)
  Sender: FDA-Public Use
  Company Number: PHHY2012BR110739

PATIENT
  Sex: Female

DRUGS (3)
  1. DIOVAN HCT [Suspect]
     Indication: HYPERTENSION
     Dosage: 1 DF, DAILY (320 MG VALS AND 12.5 MG HCTZ), DAILY
     Route: 048
     Dates: end: 201210
  2. DIOVAN [Suspect]
     Dosage: 160 MG, UNK
  3. DIOVAN [Suspect]
     Dosage: UNK UKN, UNK

REACTIONS (4)
  - Asthma [Not Recovered/Not Resolved]
  - Reflux laryngitis [Recovering/Resolving]
  - Drug hypersensitivity [Unknown]
  - Cough [Not Recovered/Not Resolved]
